FAERS Safety Report 11536606 (Version 1)
Quarter: 2015Q3

REPORT INFORMATION
  Report Type: Spontaneous
  Country: US (occurrence: US)
  Receive Date: 20150922
  Receipt Date: 20150922
  Transmission Date: 20151125
  Serious: Yes (Other)
  Sender: FDA-Public Use
  Company Number: US-PFIZER INC-2015311280

PATIENT
  Age: 56 Year
  Sex: Female

DRUGS (12)
  1. DELTASONE [Concomitant]
     Active Substance: PREDNISONE
     Dosage: UNK
     Route: 048
  2. DUONEB [Concomitant]
     Active Substance: ALBUTEROL SULFATE\IPRATROPIUM BROMIDE
     Dosage: UNK
     Route: 055
  3. VFEND [Suspect]
     Active Substance: VORICONAZOLE
     Indication: CHRONIC OBSTRUCTIVE PULMONARY DISEASE
     Dosage: 200 MG, 2X/DAY
     Route: 048
  4. VITAMIN D [Concomitant]
     Active Substance: CHOLECALCIFEROL
     Route: 048
  5. XANAX [Suspect]
     Active Substance: ALPRAZOLAM
     Dosage: UNK
     Route: 048
  6. IMODIUM [Concomitant]
     Active Substance: LOPERAMIDE HYDROCHLORIDE
     Dosage: UNK
     Route: 048
  7. PLAQUENIL [Concomitant]
     Active Substance: HYDROXYCHLOROQUINE SULFATE
     Dosage: 200 MG, UNK
     Route: 048
  8. ZOLOFT [Suspect]
     Active Substance: SERTRALINE HYDROCHLORIDE
     Dosage: 100 MG, UNK
     Route: 048
  9. ANUSOL HC [Concomitant]
     Active Substance: HYDROCORTISONE
     Dosage: UNK
     Route: 054
  10. PROCTOSOL HC [Concomitant]
     Dosage: UNK
     Route: 054
  11. COMPAZINE [Concomitant]
     Active Substance: PROCHLORPERAZINE MALEATE
     Dosage: UNK
     Route: 048
  12. COREG [Concomitant]
     Active Substance: CARVEDILOL
     Dosage: 6.25 MG, UNK
     Route: 048

REACTIONS (29)
  - Systemic lupus erythematosus [Unknown]
  - Dyspnoea [Unknown]
  - Menorrhagia [Unknown]
  - Benign salivary gland neoplasm [Unknown]
  - Depression [Unknown]
  - Haemoptysis [Unknown]
  - Calculus ureteric [Unknown]
  - Breast disorder [Unknown]
  - Mammogram abnormal [Unknown]
  - Pulmonary eosinophilia [Unknown]
  - Lung disorder [Unknown]
  - Pneumonia [Unknown]
  - Adrenal disorder [Unknown]
  - Hypertension [Unknown]
  - Dependence [Unknown]
  - Lymphadenitis [Unknown]
  - Respiratory disorder [Unknown]
  - Emphysema [Unknown]
  - Anaemia [Unknown]
  - Lymphoma [Unknown]
  - Aspergillus infection [Unknown]
  - Product use issue [Unknown]
  - Hypokalaemia [Unknown]
  - Chronic respiratory failure [Unknown]
  - Nephrolithiasis [Unknown]
  - Hypercapnia [Unknown]
  - Polymenorrhoea [Unknown]
  - Anxiety [Unknown]
  - Asthenia [Unknown]
